FAERS Safety Report 4942332-4 (Version None)
Quarter: 2006Q1

REPORT INFORMATION
  Report Type: 
  Country: None (occurrence: None)
  Receive Date: 20060313
  Receipt Date: 20051219
  Transmission Date: 20060701
  Serious: Yes (Other)
  Sender: FDA-Public Use
  Company Number: US-GLAXOSMITHKLINE-A0586243A

PATIENT
  Sex: Female

DRUGS (1)
  1. NICORETTE [Suspect]
     Dates: start: 20020101

REACTIONS (2)
  - DRUG ABUSER [None]
  - HEADACHE [None]
